FAERS Safety Report 7794570-3 (Version None)
Quarter: 2011Q3

REPORT INFORMATION
  Report Type: 
  Country: None (occurrence: None)
  Receive Date: 20110930
  Receipt Date: 20110923
  Transmission Date: 20111222
  Serious: Yes (Hospitalization)
  Sender: FDA-Public Use
  Company Number: 2011SP042397

PATIENT
  Age: 42 Year
  Sex: Male

DRUGS (9)
  1. NEXIUM [Concomitant]
  2. VENTOLIN [Concomitant]
  3. FENTANYL [Concomitant]
  4. VALPROATE SODIUM [Concomitant]
  5. DOXEPIN HCL [Concomitant]
  6. MIRTAZAPINE [Suspect]
     Indication: IRRITABILITY
     Dosage: 15 MG; 30 MG,15MG
     Dates: start: 20110615
  7. MIRTAZAPINE [Suspect]
     Indication: SLEEP DISORDER
     Dosage: 15 MG; 30 MG,15MG
     Dates: start: 20110615
  8. MIRTAZAPINE [Suspect]
     Indication: HERPES ZOSTER
     Dosage: 15 MG; 30 MG,15MG
     Dates: start: 20110615
  9. OXYCODONE HCL [Concomitant]

REACTIONS (3)
  - SKIN BURNING SENSATION [None]
  - BURNING SENSATION [None]
  - CHEST DISCOMFORT [None]
